FAERS Safety Report 8619625-2 (Version None)
Quarter: 2012Q3

REPORT INFORMATION
  Report Type: 
  Country: None (occurrence: None)
  Receive Date: 20120810
  Receipt Date: 20120726
  Transmission Date: 20120928
  Serious: Yes (Hospitalization, Other)
  Sender: FDA-Public Use
  Company Number: CIP11001932

PATIENT
  Age: 53 Year
  Sex: Female

DRUGS (9)
  1. FOSAMAX PLUS D [Suspect]
     Indication: OSTEOPOROSIS
     Dosage: UNKNOWN DOSAGE / REGIMAN, ORAL
     Route: 048
  2. LEVOTHYROXINE SODIUM [Concomitant]
  3. FOSAMAX [Suspect]
     Indication: OSTEOPOROSIS
     Dosage: 70 MG, UNKNOWN REGIMEN, ORAL, ORAL
     Route: 048
     Dates: start: 20080101
  4. FOSAMAX [Suspect]
     Indication: OSTEOPOROSIS
     Dosage: 70 MG, UNKNOWN REGIMEN, ORAL, ORAL
     Route: 048
     Dates: start: 20070901, end: 20080101
  5. CALCIUM CARBONATE [Concomitant]
  6. CRESTOR [Concomitant]
  7. ACTONEL [Suspect]
     Dosage: 35 MG, ORAL
     Route: 048
     Dates: start: 20061001, end: 20070701
  8. ALENDRONATE SODIUM [Suspect]
     Indication: OSTEOPOROSIS
     Dosage: 70 MG, UNKNOWN REGIMEN, ORAL, UNKNOWN DOSAGE / REGIMAN, ORAL
     Route: 048
     Dates: start: 20080201, end: 20090622
  9. ALENDRONATE SODIUM [Suspect]
     Indication: OSTEOPOROSIS
     Dosage: 70 MG, UNKNOWN REGIMEN, ORAL, UNKNOWN DOSAGE / REGIMAN, ORAL
     Route: 048
     Dates: start: 20090727, end: 20101020

REACTIONS (20)
  - PAIN IN EXTREMITY [None]
  - ARTHRALGIA [None]
  - OEDEMA PERIPHERAL [None]
  - GROIN PAIN [None]
  - TOXICITY TO VARIOUS AGENTS [None]
  - SKELETAL INJURY [None]
  - OSTEOGENESIS IMPERFECTA [None]
  - BONE GRAFT [None]
  - DEVICE FAILURE [None]
  - LOW TURNOVER OSTEOPATHY [None]
  - STAPHYLOCOCCAL INFECTION [None]
  - FALL [None]
  - FEMUR FRACTURE [None]
  - GAIT DISTURBANCE [None]
  - PATHOLOGICAL FRACTURE [None]
  - STRESS FRACTURE [None]
  - FRACTURE NONUNION [None]
  - BONE PAIN [None]
  - PAIN [None]
  - WALKING AID USER [None]
